FAERS Safety Report 18315516 (Version 3)
Quarter: 2020Q4

REPORT INFORMATION
  Report Type: Spontaneous
  Country: US (occurrence: US)
  Receive Date: 20200926
  Receipt Date: 20201106
  Transmission Date: 20210113
  Serious: Yes (Life-Threatening, Hospitalization, Other)
  Sender: FDA-Public Use
  Company Number: US-SERVIER-S20009294

PATIENT

DRUGS (7)
  1. TN UNSPECIFIED [Concomitant]
     Indication: ACUTE LYMPHOCYTIC LEUKAEMIA
     Dosage: EVERY 4 WEEKS
     Route: 037
     Dates: start: 20200610
  2. ONCASPAR [Suspect]
     Active Substance: PEGASPARGASE
     Indication: ACUTE LYMPHOCYTIC LEUKAEMIA
     Dosage: 2145 IU, OTHER
     Route: 042
     Dates: start: 20200608, end: 20200831
  3. TN UNSPECIFIED [Concomitant]
     Indication: ACUTE LYMPHOCYTIC LEUKAEMIA
     Dosage: EVERY 1 WEEK
     Route: 042
     Dates: start: 20200603
  4. TN UNSPECIFIED [Concomitant]
     Indication: ACUTE LYMPHOCYTIC LEUKAEMIA
     Dosage: EVERY 1 WEEK
     Route: 042
     Dates: start: 20200603
  5. TN UNSPECIFIED [Concomitant]
     Indication: ACUTE LYMPHOCYTIC LEUKAEMIA
     Dosage: EVERY 1 WEEK
     Route: 037
     Dates: start: 20200603
  6. TN UNSPECIFIED [Concomitant]
     Indication: ACUTE LYMPHOCYTIC LEUKAEMIA
     Dosage: UNK, BID
     Route: 048
     Dates: start: 20200603
  7. TN UNSPECIFIED [Concomitant]
     Dosage: UNK
     Route: 042
     Dates: start: 20200724

REACTIONS (8)
  - Klebsiella sepsis [Recovering/Resolving]
  - Device related infection [Recovering/Resolving]
  - Cerebral microhaemorrhage [Recovering/Resolving]
  - Febrile neutropenia [Recovering/Resolving]
  - Fungal infection [Recovering/Resolving]
  - Jugular vein thrombosis [Recovering/Resolving]
  - Pulmonary haemorrhage [Recovering/Resolving]
  - Myelosuppression [Recovering/Resolving]

NARRATIVE: CASE EVENT DATE: 20200727
